FAERS Safety Report 4331921-6 (Version None)
Quarter: 2004Q1

REPORT INFORMATION
  Report Type: 
  Country: None (occurrence: None)
  Receive Date: 20040330
  Receipt Date: 20040315
  Transmission Date: 20041129
  Serious: Yes (Life-Threatening, Hospitalization)
  Sender: FDA-Public Use
  Company Number: WAES 0312PER00009

PATIENT
  Age: 80 Year
  Sex: Male

DRUGS (6)
  1. COZAAR [Suspect]
     Indication: CARDIAC FAILURE
     Route: 048
     Dates: start: 20030326, end: 20031220
  2. DIGOXIN [Suspect]
     Indication: CARDIAC FAILURE
     Dosage: 0.125 MG/DAILY
     Route: 048
     Dates: start: 20030806
  3. WARFARIN SODIUM [Suspect]
     Indication: ATRIAL FIBRILLATION
     Dosage: 2.5 MG/DAILY
     Route: 048
     Dates: start: 20031116, end: 20031218
  4. FLUOXETINE [Concomitant]
  5. FUROSEMIDE [Concomitant]
  6. SPIRONOLACTONE [Concomitant]

REACTIONS (22)
  - ANAEMIA [None]
  - ANOREXIA [None]
  - ASTHENIA [None]
  - BLOOD GLUCOSE INCREASED [None]
  - BLOOD POTASSIUM DECREASED [None]
  - BLOOD PRESSURE DECREASED [None]
  - BRONCHIECTASIS [None]
  - DEHYDRATION [None]
  - DEPRESSION [None]
  - FOOD INTOLERANCE [None]
  - GENERAL PHYSICAL HEALTH DETERIORATION [None]
  - HAEMATOCRIT DECREASED [None]
  - INFECTION [None]
  - INTERNATIONAL NORMALISED RATIO INCREASED [None]
  - LUNG NEOPLASM [None]
  - MALNUTRITION [None]
  - PALLOR [None]
  - SEPSIS [None]
  - THIRST [None]
  - TUBERCULOSIS [None]
  - URINARY TRACT INFECTION [None]
  - WEIGHT DECREASED [None]
